FAERS Safety Report 11924737 (Version 2)
Quarter: 2016Q4

REPORT INFORMATION
  Report Type: Spontaneous
  Country: US (occurrence: US)
  Receive Date: 20160118
  Receipt Date: 20161216
  Transmission Date: 20170206
  Serious: No
  Sender: FDA-Public Use
  Company Number: US-ENDO PHARMACEUTICALS INC.-2015-003765

PATIENT
  Sex: 0

DRUGS (2)
  1. RHEUMATREX [Suspect]
     Active Substance: METHOTREXATE SODIUM
     Indication: PRODUCT USED FOR UNKNOWN INDICATION
     Route: 065
  2. CIMZIA [Concomitant]
     Active Substance: CERTOLIZUMAB PEGOL
     Indication: PRODUCT USED FOR UNKNOWN INDICATION

REACTIONS (2)
  - Malaise [Recovering/Resolving]
  - Pain [Not Recovered/Not Resolved]
